FAERS Safety Report 21127478 (Version 1)
Quarter: 2022Q3

REPORT INFORMATION
  Report Type: Spontaneous
  Country: US (occurrence: US)
  Receive Date: 20220725
  Receipt Date: 20220725
  Transmission Date: 20221026
  Serious: No
  Sender: FDA-Public Use
  Company Number: US-ABBVIE-21K-163-4187419-00

PATIENT
  Sex: Female

DRUGS (1)
  1. SYNTHROID [Suspect]
     Active Substance: LEVOTHYROXINE SODIUM
     Indication: Product used for unknown indication
     Route: 048

REACTIONS (7)
  - Body temperature fluctuation [Unknown]
  - Vision blurred [Unknown]
  - Dry skin [Unknown]
  - Nail ridging [Unknown]
  - Hyperhidrosis [Unknown]
  - Memory impairment [Unknown]
  - Alopecia [Unknown]
